FAERS Safety Report 7991095-7 (Version None)
Quarter: 2011Q4

REPORT INFORMATION
  Report Type: 
  Country: None (occurrence: None)
  Receive Date: 20111219
  Receipt Date: 20111215
  Transmission Date: 20120403
  Serious: Yes (Other)
  Sender: FDA-Public Use
  Company Number: US-ROCHE-794932

PATIENT
  Sex: Male
  Weight: 61.29 kg

DRUGS (1)
  1. ACCUTANE [Suspect]
     Indication: ACNE
     Route: 048
     Dates: start: 19951205, end: 19960405

REACTIONS (8)
  - COELIAC DISEASE [None]
  - DUODENITIS [None]
  - XEROSIS [None]
  - ERYTHEMA [None]
  - SYNCOPE [None]
  - CROHN'S DISEASE [None]
  - IRRITABLE BOWEL SYNDROME [None]
  - GASTRITIS [None]
